FAERS Safety Report 13713648 (Version 4)
Quarter: 2019Q1

REPORT INFORMATION
  Report Type: Spontaneous
  Country: IT (occurrence: IT)
  Receive Date: 20170704
  Receipt Date: 20190301
  Transmission Date: 20190417
  Serious: Yes (Death, Life-Threatening, Other)
  Sender: FDA-Public Use
  Company Number: IT-ACCORD-053081

PATIENT
  Age: 58 Year
  Sex: Male

DRUGS (3)
  1. DISSENTEN [Concomitant]
     Active Substance: LOPERAMIDE HYDROCHLORIDE
     Indication: PRODUCT USED FOR UNKNOWN INDICATION
     Dosage: 2 MG
     Route: 048
     Dates: start: 20170601, end: 20170601
  2. VARGATEF [Suspect]
     Active Substance: NINTEDANIB
     Indication: LUNG ADENOCARCINOMA
     Dosage: 400 MG DAILY
     Route: 048
     Dates: start: 20170529, end: 20170601
  3. DOCETAXEL. [Suspect]
     Active Substance: DOCETAXEL
     Indication: LUNG ADENOCARCINOMA
     Route: 042
     Dates: start: 20170526, end: 20170526

REACTIONS (5)
  - Diarrhoea [Fatal]
  - Sepsis [Unknown]
  - Urine output decreased [Fatal]
  - Pain [Fatal]
  - Neutropenia [Fatal]

NARRATIVE: CASE EVENT DATE: 20170601
